FAERS Safety Report 12457358 (Version 2)
Quarter: 2016Q2

REPORT INFORMATION
  Report Type: Spontaneous
  Country: US (occurrence: US)
  Receive Date: 20160610
  Receipt Date: 20160630
  Transmission Date: 20160815
  Serious: Yes (Hospitalization, Other)
  Sender: FDA-Public Use
  Company Number: US-SA-2016SA107413

PATIENT
  Age: 68 Year
  Sex: Female

DRUGS (3)
  1. METRONIDAZOLE. [Concomitant]
     Active Substance: METRONIDAZOLE
  2. CLOPIDOGREL BISULFATE. [Suspect]
     Active Substance: CLOPIDOGREL BISULFATE
     Indication: ANTICOAGULANT THERAPY
     Route: 065
  3. CEFOXITIN [Concomitant]
     Active Substance: CEFOXITIN SODIUM

REACTIONS (21)
  - Anaemia [Recovering/Resolving]
  - Prothrombin level increased [Recovering/Resolving]
  - ADAMTS13 activity decreased [Recovering/Resolving]
  - Computerised tomogram abnormal [Recovering/Resolving]
  - Red blood cell schistocytes present [Recovering/Resolving]
  - Activated partial thromboplastin time prolonged [Recovering/Resolving]
  - Abdominal pain lower [Recovering/Resolving]
  - Vomiting [Recovering/Resolving]
  - Leukocytosis [Recovering/Resolving]
  - Colitis [Recovering/Resolving]
  - Diarrhoea haemorrhagic [Recovering/Resolving]
  - Heart rate increased [Recovering/Resolving]
  - Blood lactate dehydrogenase abnormal [Recovering/Resolving]
  - Fibrin D dimer increased [Recovering/Resolving]
  - Blood fibrinogen increased [Recovering/Resolving]
  - Acute myocardial infarction [Unknown]
  - Troponin increased [Unknown]
  - Echocardiogram abnormal [Unknown]
  - Thrombotic thrombocytopenic purpura [Recovering/Resolving]
  - Thrombocytopenia [Recovering/Resolving]
  - Nausea [Recovering/Resolving]
